FAERS Safety Report 5503817-5 (Version None)
Quarter: 2007Q4

REPORT INFORMATION
  Report Type: 
  Country: None (occurrence: None)
  Receive Date: 20071101
  Receipt Date: 20071022
  Transmission Date: 20080405
  Serious: Yes (Other)
  Sender: FDA-Public Use
  Company Number: JP-BRISTOL-MYERS SQUIBB COMPANY-13951348

PATIENT
  Age: 50 Year
  Sex: Male

DRUGS (6)
  1. TRIAMCINOLONE ACETONIDE [Suspect]
     Indication: RETINITIS
     Dosage: TRIAMCINOLONE ACETONIDE WAS GIVEN AS SUBTENON INJECTION.
     Route: 047
  2. LEVOFLOXACIN [Suspect]
  3. COLISTIMETHATE SODIUM [Suspect]
     Route: 061
  4. PREDNISOLONE [Concomitant]
     Indication: BEHCET'S SYNDROME
  5. ASPIRIN [Concomitant]
     Indication: BEHCET'S SYNDROME
  6. BETAMETHASONE [Concomitant]
     Indication: BEHCET'S SYNDROME
     Route: 061

REACTIONS (1)
  - ORBITAL INFECTION [None]
